FAERS Safety Report 7249543-6 (Version None)
Quarter: 2011Q1

REPORT INFORMATION
  Report Type: 
  Country: None (occurrence: None)
  Receive Date: 20110128
  Receipt Date: 20110121
  Transmission Date: 20110831
  Serious: Yes (Hospitalization, Other)
  Sender: FDA-Public Use
  Company Number: US-TYCO HEALTHCARE/MALLINCKRODT-T201100094

PATIENT
  Sex: Female

DRUGS (2)
  1. LYRICA [Concomitant]
     Dosage: UNK
  2. METHADOSE [Suspect]
     Dosage: UNK

REACTIONS (6)
  - DRUG DEPENDENCE [None]
  - TOOTH LOSS [None]
  - APPARENT DEATH [None]
  - SCAR [None]
  - ASTHENIA [None]
  - WEIGHT INCREASED [None]
